FAERS Safety Report 17867135 (Version 4)
Quarter: 2021Q1

REPORT INFORMATION
  Report Type: Report from Study
  Country: US (occurrence: US)
  Receive Date: 20200605
  Receipt Date: 20210320
  Transmission Date: 20210419
  Serious: Yes (Hospitalization, Other)
  Sender: FDA-Public Use
  Company Number: NVSC2020US158080

PATIENT
  Age: 16 Year
  Sex: Male
  Weight: 73 kg

DRUGS (4)
  1. KYMRIAH [Suspect]
     Active Substance: TISAGENLECLEUCEL
     Dosage: UNK
     Route: 042
     Dates: start: 20201124
  2. FLUDARABINE [Concomitant]
     Active Substance: FLUDARABINE PHOSPHATE
     Indication: CHEMOTHERAPY
     Dosage: UNK
     Route: 065
  3. KYMRIAH [Suspect]
     Active Substance: TISAGENLECLEUCEL
     Indication: B-CELL TYPE ACUTE LEUKAEMIA
     Dosage: 18 ML
     Route: 042
     Dates: start: 20200526
  4. CYCLOPHOSPHAMIDE. [Concomitant]
     Active Substance: CYCLOPHOSPHAMIDE
     Indication: CHEMOTHERAPY
     Dosage: UNK
     Route: 065

REACTIONS (19)
  - Cytopenia [Unknown]
  - Hypoxia [Unknown]
  - Headache [Unknown]
  - Pyrexia [Unknown]
  - Anxiety [Unknown]
  - Cytokine release syndrome [Recovered/Resolved]
  - Neurotoxicity [Recovered/Resolved]
  - Hypotension [Unknown]
  - Off label use [Unknown]
  - Lymphocyte count decreased [Unknown]
  - Pneumonia [Recovering/Resolving]
  - Pancytopenia [Unknown]
  - Hypogammaglobulinaemia [Recovered/Resolved]
  - Neutropenia [Unknown]
  - Hypertension [Unknown]
  - Aphasia [Unknown]
  - Respiratory distress [Recovering/Resolving]
  - Bacteraemia [Unknown]
  - Thrombocytopenia [Unknown]

NARRATIVE: CASE EVENT DATE: 20200622
